FAERS Safety Report 11813739 (Version 1)
Quarter: 2015Q4

REPORT INFORMATION
  Report Type: Spontaneous
  Country: US (occurrence: US)
  Receive Date: 20151209
  Receipt Date: 20151209
  Transmission Date: 20160305
  Serious: Yes (Other)
  Sender: FDA-Public Use
  Company Number: US-AMGEN-USASP2015129254

PATIENT
  Age: 83 Year
  Sex: Male

DRUGS (5)
  1. SUTENT [Suspect]
     Active Substance: SUNITINIB MALATE
     Indication: PRODUCT USED FOR UNKNOWN INDICATION
     Dosage: 12.5 MG, QD
     Route: 048
     Dates: start: 20151113
  2. CALCIUM [Concomitant]
     Active Substance: CALCIUM
  3. SANDOSTATIN [Concomitant]
     Active Substance: OCTREOTIDE ACETATE
  4. VITAMIN D                          /00107901/ [Concomitant]
     Active Substance: ERGOCALCIFEROL
  5. PROLIA [Suspect]
     Active Substance: DENOSUMAB
     Indication: PRODUCT USED FOR UNKNOWN INDICATION
     Dosage: Q6MO
     Route: 065

REACTIONS (14)
  - Compression fracture [Unknown]
  - Gastrointestinal haemorrhage [Unknown]
  - Metastases to spleen [Unknown]
  - Neuroendocrine tumour [Unknown]
  - Intervertebral disc degeneration [Unknown]
  - Neuropathy peripheral [Unknown]
  - Disease progression [Unknown]
  - Carcinoid syndrome [Unknown]
  - Nausea [Unknown]
  - Metastatic carcinoid tumour [Unknown]
  - Metastases to liver [Unknown]
  - Iron deficiency anaemia [Recovered/Resolved]
  - Coronary artery disease [Unknown]
  - Depression [Unknown]

NARRATIVE: CASE EVENT DATE: 2014
